FAERS Safety Report 5942614-3 (Version None)
Quarter: 2008Q4

REPORT INFORMATION
  Report Type: 
  Country: None (occurrence: None)
  Receive Date: 20081103
  Receipt Date: 20081020
  Transmission Date: 20090506
  Serious: Yes (Hospitalization)
  Sender: FDA-Public Use
  Company Number: 8031436

PATIENT
  Age: 82 Year
  Sex: Female

DRUGS (8)
  1. KEPPRA [Suspect]
     Indication: CONVULSION
     Dosage: 250 MG 2/D PO
     Route: 048
  2. COVERSYL [Concomitant]
  3. CORTANCYL [Concomitant]
  4. ESIDRIX [Concomitant]
  5. AMLOD [Concomitant]
  6. CARDENSIEL [Concomitant]
  7. FORLAX [Concomitant]
  8. INIPOMP [Concomitant]

REACTIONS (7)
  - AORTIC CALCIFICATION [None]
  - AORTIC STENOSIS [None]
  - BLOOD CORTICOTROPHIN ABNORMAL [None]
  - CENTRAL NERVOUS SYSTEM LESION [None]
  - FALL [None]
  - HYPONATRAEMIA [None]
  - LOSS OF CONSCIOUSNESS [None]
